FAERS Safety Report 19258328 (Version 1)
Quarter: 2021Q2

REPORT INFORMATION
  Report Type: Spontaneous
  Country: JP (occurrence: JP)
  Receive Date: 20210514
  Receipt Date: 20210514
  Transmission Date: 20210717
  Serious: Yes (Other)
  Sender: FDA-Public Use
  Company Number: JP-SUN PHARMACEUTICAL INDUSTRIES LTD-2021R1-296514

PATIENT
  Age: 54 Year
  Sex: Female

DRUGS (1)
  1. OCTREOTIDE. [Suspect]
     Active Substance: OCTREOTIDE
     Indication: MALIGNANT GASTROINTESTINAL OBSTRUCTION
     Dosage: 400 MILLIGRAM, DAILY
     Route: 042

REACTIONS (1)
  - Portal venous gas [Recovered/Resolved]
